FAERS Safety Report 5658664-0 (Version None)
Quarter: 2008Q1

REPORT INFORMATION
  Report Type: 
  Country: None (occurrence: None)
  Receive Date: 20080310
  Receipt Date: 20070326
  Transmission Date: 20080703
  Serious: No
  Sender: FDA-Public Use
  Company Number: US-BAYER-200710923BCC

PATIENT
  Age: 42 Year
  Sex: Male

DRUGS (3)
  1. ALEVE [Suspect]
     Indication: DRUG USE FOR UNKNOWN INDICATION
     Route: 048
  2. LORATADINE [Suspect]
     Indication: DRUG USE FOR UNKNOWN INDICATION
  3. 3-4 BEERS [Suspect]
     Indication: DRUG USE FOR UNKNOWN INDICATION

REACTIONS (2)
  - ORAL PRURITUS [None]
  - PRURITUS GENITAL [None]
